FAERS Safety Report 8067095-8 (Version None)
Quarter: 2012Q1

REPORT INFORMATION
  Report Type: 
  Country: None (occurrence: None)
  Receive Date: 20120124
  Receipt Date: 20120117
  Transmission Date: 20120608
  Serious: Yes (Other)
  Sender: FDA-Public Use
  Company Number: US-US-EMD SERONO, INC.-7072268

PATIENT
  Sex: Male

DRUGS (4)
  1. UNSPECIFIED MEDICATIONS [Concomitant]
  2. HIGH BLOOD PRESSURE MEDICATION [Concomitant]
     Indication: HYPERTENSION
  3. EXCEDRIN [Concomitant]
     Indication: ARTHRITIS
  4. REBIF [Suspect]
     Indication: MULTIPLE SCLEROSIS
     Route: 058
     Dates: start: 20100816

REACTIONS (5)
  - INFLUENZA LIKE ILLNESS [None]
  - MEMORY IMPAIRMENT [None]
  - ARTHRITIS [None]
  - DEPRESSION [None]
  - INTERVERTEBRAL DISC PROTRUSION [None]
